FAERS Safety Report 6995969-5 (Version None)
Quarter: 2010Q3

REPORT INFORMATION
  Report Type: 
  Country: None (occurrence: None)
  Receive Date: 20100918
  Receipt Date: 20081121
  Transmission Date: 20110219
  Serious: No
  Sender: FDA-Public Use
  Company Number: US-WYE-H07114508

PATIENT
  Sex: Male

DRUGS (2)
  1. EFFEXOR XR [Suspect]
     Dosage: ^TAPERING DOWN^
     Route: 048
     Dates: end: 20081117
  2. PRISTIQ [Suspect]
     Dosage: ^INCREASING^
     Route: 048

REACTIONS (3)
  - BONE PAIN [None]
  - DRUG WITHDRAWAL SYNDROME [None]
  - DYSPEPSIA [None]
